FAERS Safety Report 8440866 (Version 2)
Quarter: 2014Q1

REPORT INFORMATION
  Report Type: Report from Study
  Country: KR (occurrence: KR)
  Receive Date: 20120305
  Receipt Date: 20140212
  Transmission Date: 20141002
  Serious: Yes (Hospitalization)
  Sender: FDA-Public Use
  Company Number: KR-JNJFOC-20120212234

PATIENT
  Age: 17 Year
  Sex: Male
  Weight: 41.9 kg

DRUGS (6)
  1. REMICADE [Suspect]
     Indication: CROHN^S DISEASE
     Route: 042
     Dates: start: 20120521, end: 20120911
  2. REMICADE [Suspect]
     Indication: CROHN^S DISEASE
     Route: 042
     Dates: start: 20120214, end: 20120327
  3. AZATHIOPRINE PCH [Concomitant]
     Indication: CROHN^S DISEASE
     Route: 048
     Dates: start: 20110414, end: 20110603
  4. PENTASA S.R. [Concomitant]
     Indication: CROHN^S DISEASE
     Route: 048
     Dates: start: 20100610
  5. ALLOPURINOL [Concomitant]
     Indication: RENAL FAILURE CHRONIC
     Route: 048
     Dates: start: 20110603
  6. BONKY [Concomitant]
     Indication: RENAL FAILURE CHRONIC
     Route: 042
     Dates: start: 20120522

REACTIONS (1)
  - Haematochezia [Recovered/Resolved]
